FAERS Safety Report 16276414 (Version 1)
Quarter: 2019Q2

REPORT INFORMATION
  Report Type: Spontaneous
  Country: US (occurrence: US)
  Receive Date: 20190505
  Receipt Date: 20190505
  Transmission Date: 20190711
  Serious: Yes (Disabling)
  Sender: FDA-Public Use
  Company Number: None

PATIENT
  Age: 69 Year
  Sex: Male
  Weight: 96.75 kg

DRUGS (11)
  1. ALLOPURINOL 300MG [Suspect]
     Active Substance: ALLOPURINOL
     Indication: GOUT
     Dosage: ?          QUANTITY:90 TABLET(S);?
     Route: 048
     Dates: start: 20181205, end: 20190305
  2. PRAVASTATIN 40MG QD [Concomitant]
  3. CENTRUM SILVER MILTIVITAMIN [Concomitant]
  4. ASPRIN [Concomitant]
     Active Substance: ASPIRIN
  5. RESVERATROL [Concomitant]
     Active Substance: DIETARY SUPPLEMENT\RESVERATROL
  6. VITAMIN D3 [Concomitant]
     Active Substance: CHOLECALCIFEROL
  7. C-PAP DEVICE [Concomitant]
  8. ALLOPURINOL 300MG QD [Concomitant]
  9. PROPAFENONE HCL ER 225MG BID [Concomitant]
  10. FISH OIL [Concomitant]
     Active Substance: FISH OIL
  11. VITAMIN C [Concomitant]
     Active Substance: ASCORBIC ACID

REACTIONS (3)
  - Product substitution issue [None]
  - Gout [None]
  - Drug ineffective [None]

NARRATIVE: CASE EVENT DATE: 20190305
